FAERS Safety Report 7608808-6 (Version None)
Quarter: 2011Q3

REPORT INFORMATION
  Report Type: 
  Country: None (occurrence: None)
  Receive Date: 20110714
  Receipt Date: 20110711
  Transmission Date: 20111222
  Serious: Yes (Hospitalization)
  Sender: FDA-Public Use
  Company Number: SE-PFIZER INC-2011155326

PATIENT
  Age: 13 Year
  Sex: Male

DRUGS (4)
  1. KEPPRA [Concomitant]
     Indication: EPILEPSY
     Dosage: 500 MG, UNK
  2. ETHOSUXIMIDE [Suspect]
     Dosage: 2.5 G, DAILY
     Route: 048
     Dates: start: 20110101, end: 20110419
  3. ETHOSUXIMIDE [Suspect]
     Indication: EPILEPSY
     Dosage: 750 MG, 2X/DAY
     Route: 048
     Dates: start: 20110419, end: 20110524
  4. LAMICTAL [Concomitant]
     Indication: EPILEPSY
     Dosage: 200 MG, UNK

REACTIONS (1)
  - LYMPHADENOPATHY [None]
